FAERS Safety Report 9110169 (Version 1)
Quarter: 2013Q1

REPORT INFORMATION
  Report Type: Report from Study
  Country: DK (occurrence: DK)
  Receive Date: 20130222
  Receipt Date: 20130222
  Transmission Date: 20140127
  Serious: Yes (Other)
  Sender: FDA-Public Use
  Company Number: DK-ROCHE-1193196

PATIENT
  Sex: 0

DRUGS (3)
  1. HERCEPTIN [Suspect]
     Indication: METASTATIC GASTRIC CANCER
     Route: 065
  2. XELODA [Suspect]
     Indication: METASTATIC GASTRIC CANCER
     Route: 065
  3. OXALIPLATIN [Suspect]
     Indication: METASTATIC GASTRIC CANCER
     Route: 065

REACTIONS (2)
  - Neutropenic sepsis [Recovered/Resolved]
  - Azotaemia [Recovered/Resolved]
